FAERS Safety Report 8372455-1 (Version None)
Quarter: 2012Q2

REPORT INFORMATION
  Report Type: 
  Country: None (occurrence: None)
  Receive Date: 20120521
  Receipt Date: 20120515
  Transmission Date: 20120825
  Serious: No
  Sender: FDA-Public Use
  Company Number: US-PFIZER INC-2012118013

PATIENT

DRUGS (2)
  1. NEOSPORIN G.U. IRRIGANT [Suspect]
     Dosage: UNK
  2. NEOSPORIN [Suspect]
     Dosage: UNK

REACTIONS (2)
  - HYPERSENSITIVITY [None]
  - LIP SWELLING [None]
